FAERS Safety Report 19424074 (Version 1)
Quarter: 2021Q2

REPORT INFORMATION
  Report Type: Other
  Country: FR (occurrence: FR)
  Receive Date: 20210616
  Receipt Date: 20210616
  Transmission Date: 20210717
  Serious: Yes (Death)
  Sender: FDA-Public Use
  Company Number: FR-GW PHARMA-202106FRGW02884

PATIENT

DRUGS (1)
  1. EPIDYOLEX [Suspect]
     Active Substance: CANNABIDIOL
     Indication: EPILEPTIC ENCEPHALOPATHY
     Dosage: 7 MG/KG, 350 MILLIGRAM, QD
     Route: 048
     Dates: start: 20200629, end: 20210605

REACTIONS (3)
  - Cardiac arrest [Fatal]
  - Product use in unapproved indication [Unknown]
  - General physical health deterioration [Fatal]

NARRATIVE: CASE EVENT DATE: 202106
